FAERS Safety Report 15991941 (Version 1)
Quarter: 2019Q1

REPORT INFORMATION
  Report Type: Spontaneous
  Country: CZ (occurrence: CZ)
  Receive Date: 20190221
  Receipt Date: 20190221
  Transmission Date: 20190418
  Serious: Yes (Hospitalization)
  Sender: FDA-Public Use
  Company Number: CZ-JNJFOC-20190224245

PATIENT
  Age: 70 Year
  Sex: Female

DRUGS (8)
  1. TEZEO [Concomitant]
     Active Substance: TELMISARTAN
     Dosage: THE DOSAGE 1-0-0
     Route: 065
  2. FENOFIX [Concomitant]
     Dosage: THE DOSAGE 1-0-0
     Route: 065
  3. CYNT [Concomitant]
     Dosage: THE DOSAGE 1-0-0
     Route: 065
  4. DETRALEX [Concomitant]
     Active Substance: DIOSMIN\HESPERIDIN
     Dosage: THE DOSAGE 2-0-0
     Route: 065
  5. SIOFOR [Concomitant]
     Active Substance: METFORMIN HYDROCHLORIDE
     Dosage: THE DOSAGE 1-0-1
     Route: 065
  6. INVOKANA [Suspect]
     Active Substance: CANAGLIFLOZIN
     Indication: TYPE 2 DIABETES MELLITUS
     Dosage: THE DOSAGE 1-0-0
     Route: 048
     Dates: start: 20181002, end: 20181016
  7. ATORIS [Concomitant]
     Active Substance: ATORVASTATIN CALCIUM
     Dosage: DOSAGE 0-0-0-1
     Route: 065
  8. LOKREN [Concomitant]
     Active Substance: BETAXOLOL HYDROCHLORIDE
     Dosage: DOSAGE HALF-0-0
     Route: 065

REACTIONS (2)
  - Deep vein thrombosis [Recovered/Resolved]
  - Pulmonary embolism [Recovered/Resolved]

NARRATIVE: CASE EVENT DATE: 20181014
